FAERS Safety Report 9938834 (Version 1)
Quarter: 2014Q1

REPORT INFORMATION
  Report Type: Spontaneous
  Country: US (occurrence: US)
  Receive Date: 20140303
  Receipt Date: 20140303
  Transmission Date: 20141002
  Serious: No
  Sender: FDA-Public Use
  Company Number: US-PFIZER INC-2014059308

PATIENT
  Sex: Female

DRUGS (3)
  1. PRISTIQ [Suspect]
     Indication: TREMOR
     Dosage: 200 MG, UNK
  2. CIPRO [Concomitant]
     Dosage: UNK
  3. AVELOX [Concomitant]
     Dosage: UNK

REACTIONS (4)
  - Tremor [Unknown]
  - Influenza [Unknown]
  - Asthenia [Unknown]
  - Off label use [Unknown]
